FAERS Safety Report 6772822 (Version 15)
Quarter: 2019Q3

REPORT INFORMATION
  Report Type: Report from Study
  Country: CA (occurrence: CA)
  Receive Date: 20080926
  Receipt Date: 20190814
  Transmission Date: 20191005
  Serious: Yes (Disabling, Other)
  Sender: FDA-Public Use
  Company Number: PHHY2008CA22231

PATIENT
  Age: 64 Year
  Sex: Male

DRUGS (6)
  1. GLEEVEC [Suspect]
     Active Substance: IMATINIB MESYLATE
     Dosage: 200 MG, QD
     Route: 048
  2. LIPITOR [Concomitant]
     Active Substance: ATORVASTATIN CALCIUM
     Indication: PRODUCT USED FOR UNKNOWN INDICATION
     Route: 065
  3. GLEEVEC [Suspect]
     Active Substance: IMATINIB MESYLATE
     Indication: ACUTE LYMPHOCYTIC LEUKAEMIA
     Dosage: 400 MG, QD
     Route: 048
     Dates: start: 20050501, end: 200810
  4. VITAMIN B12 [Concomitant]
     Active Substance: CYANOCOBALAMIN
     Indication: PRODUCT USED FOR UNKNOWN INDICATION
     Route: 065
  5. CRESTOR [Concomitant]
     Active Substance: ROSUVASTATIN CALCIUM
     Indication: PRODUCT USED FOR UNKNOWN INDICATION
     Route: 065
  6. GLEEVEC [Suspect]
     Active Substance: IMATINIB MESYLATE
     Dosage: 400 MG, QD
     Route: 048

REACTIONS (26)
  - Dyspnoea [Unknown]
  - Abdominal discomfort [Not Recovered/Not Resolved]
  - Nausea [Not Recovered/Not Resolved]
  - Weight increased [Unknown]
  - Anaemia [Unknown]
  - Lacrimation increased [Unknown]
  - Malaise [Unknown]
  - Dysgeusia [Unknown]
  - Mobility decreased [Unknown]
  - Hypophagia [Unknown]
  - Decreased appetite [Unknown]
  - Pain in extremity [Unknown]
  - Nasopharyngitis [Unknown]
  - Wrong technique in product usage process [Unknown]
  - Pulmonary mass [Unknown]
  - Muscle spasms [Unknown]
  - Hypoaesthesia [Unknown]
  - Renal disorder [Unknown]
  - Nail discolouration [Unknown]
  - Sunburn [Unknown]
  - Blister [Unknown]
  - Dyskinesia [Not Recovered/Not Resolved]
  - Tremor [Recovering/Resolving]
  - Myalgia [Not Recovered/Not Resolved]
  - Paraesthesia [Unknown]
  - Drug ineffective [Unknown]

NARRATIVE: CASE EVENT DATE: 200705
